FAERS Safety Report 7256210-1 (Version None)
Quarter: 2011Q1

REPORT INFORMATION
  Report Type: 
  Country: None (occurrence: None)
  Receive Date: 20110129
  Receipt Date: 20100510
  Transmission Date: 20110831
  Serious: No
  Sender: FDA-Public Use
  Company Number: US-ABBOTT-10P-163-0643510-00

PATIENT
  Sex: Female
  Weight: 63.56 kg

DRUGS (15)
  1. RECLAST [Concomitant]
     Indication: PRODUCT USED FOR UNKNOWN INDICATION
  2. ALLEGRA [Concomitant]
     Indication: PRODUCT USED FOR UNKNOWN INDICATION
  3. HUMIRA [Suspect]
     Indication: RHEUMATOID ARTHRITIS
     Dates: start: 20100409, end: 20100428
  4. METHOTREXATE [Concomitant]
     Indication: RHEUMATOID ARTHRITIS
  5. FOLIC ACID [Concomitant]
     Indication: RHEUMATOID ARTHRITIS
     Dosage: 4MG DAILY
  6. SYNTHROID [Concomitant]
     Dosage: 75MCG DAILY
  7. ASA [Concomitant]
     Indication: PRODUCT USED FOR UNKNOWN INDICATION
  8. METFORMIN [Concomitant]
     Indication: DIABETES MELLITUS
     Dosage: 500MG DAILY
  9. METFORMIN [Concomitant]
     Dosage: 100MG DAILY
  10. ASCORBIC ACID [Concomitant]
     Indication: PRODUCT USED FOR UNKNOWN INDICATION
  11. CELZINIR [Concomitant]
     Indication: SINUSITIS
  12. VITAMIN D [Concomitant]
     Indication: PRODUCT USED FOR UNKNOWN INDICATION
  13. SYNTHROID [Concomitant]
     Indication: HYPOTHYROIDISM
     Dosage: 175MCG DAILY
  14. FLONASE [Concomitant]
     Indication: SINUSITIS
     Dosage: ONE SPRAY EACH NOSTRIL DAILY
  15. DAILY MULTIVITAMIN [Concomitant]
     Indication: PRODUCT USED FOR UNKNOWN INDICATION
     Dosage: DAILY

REACTIONS (4)
  - COUGH [None]
  - SINUSITIS [None]
  - DYSPHONIA [None]
  - EPISTAXIS [None]
